FAERS Safety Report 8524286-7 (Version None)
Quarter: 2012Q3

REPORT INFORMATION
  Report Type: 
  Country: None (occurrence: None)
  Receive Date: 20120720
  Receipt Date: 20120711
  Transmission Date: 20120928
  Serious: Yes (Other)
  Sender: FDA-Public Use
  Company Number: FR-ASTRAZENECA-2012SE48756

PATIENT
  Age: 69 Year
  Sex: Male

DRUGS (4)
  1. IRESSA [Suspect]
     Indication: ADENOCARCINOMA
     Route: 048
     Dates: start: 20120401, end: 20120101
  2. IRESSA [Suspect]
     Route: 048
     Dates: start: 20120101
  3. NEXIUM [Suspect]
     Route: 048
     Dates: start: 20120401
  4. NICARDIPINE HCL [Concomitant]

REACTIONS (4)
  - MEMORY IMPAIRMENT [None]
  - RENAL FAILURE [None]
  - AGITATION [None]
  - DELIRIUM [None]
